FAERS Safety Report 14143589 (Version 1)
Quarter: 2017Q4

REPORT INFORMATION
  Report Type: Spontaneous
  Country: FR (occurrence: FR)
  Receive Date: 20171030
  Receipt Date: 20171030
  Transmission Date: 20180321
  Serious: Yes (Hospitalization)
  Sender: FDA-Public Use
  Company Number: FR-ROCHE-2012613

PATIENT
  Age: 80 Year
  Sex: Male

DRUGS (3)
  1. COTELLIC [Suspect]
     Active Substance: COBIMETINIB
     Indication: MALIGNANT MELANOMA
     Route: 048
     Dates: start: 20170805
  2. ZELBORAF [Suspect]
     Active Substance: VEMURAFENIB
     Indication: MALIGNANT MELANOMA
     Route: 048
     Dates: start: 20170805, end: 20170822
  3. DABRAFENIB [Concomitant]
     Active Substance: DABRAFENIB
     Dosage: SINGLE DOSE.
     Route: 065

REACTIONS (4)
  - Purpura [Recovering/Resolving]
  - Cheilitis [Recovering/Resolving]
  - Rash maculo-papular [Recovering/Resolving]
  - Hypertransaminasaemia [Recovering/Resolving]

NARRATIVE: CASE EVENT DATE: 20170822
